FAERS Safety Report 6851542-0 (Version None)
Quarter: 2010Q3

REPORT INFORMATION
  Report Type: 
  Country: None (occurrence: None)
  Receive Date: 20100717
  Receipt Date: 20080116
  Transmission Date: 20110219
  Serious: No
  Sender: FDA-Public Use
  Company Number: US-PFIZER INC-2008006819

PATIENT
  Sex: Female
  Weight: 75.8 kg

DRUGS (5)
  1. CHANTIX [Suspect]
     Indication: SMOKING CESSATION THERAPY
     Dosage: INTERVAL: EVERY DAY
     Route: 048
     Dates: start: 20080106
  2. ADVIL LIQUI-GELS [Concomitant]
  3. ACTONEL [Concomitant]
     Indication: BONE DISORDER
  4. AMBIEN [Concomitant]
     Indication: SLEEP DISORDER
  5. LEVOXYL [Concomitant]
     Indication: HYPOTHYROIDISM

REACTIONS (4)
  - FLUID RETENTION [None]
  - MEMORY IMPAIRMENT [None]
  - MICTURITION FREQUENCY DECREASED [None]
  - WEIGHT INCREASED [None]
